FAERS Safety Report 14122886 (Version 1)
Quarter: 2017Q4

REPORT INFORMATION
  Report Type: Spontaneous
  Country: US (occurrence: US)
  Receive Date: 20171024
  Receipt Date: 20171024
  Transmission Date: 20180321
  Serious: Yes (Other)
  Sender: FDA-Public Use
  Company Number: None

PATIENT
  Age: 41 Year
  Sex: Female
  Weight: 85.5 kg

DRUGS (8)
  1. XIIDRA [Suspect]
     Active Substance: LIFITEGRAST
     Indication: DRY EYE
     Dosage: ?          QUANTITY:2 DROP(S);?
     Route: 047
     Dates: start: 20171022, end: 20171024
  2. XIIDRA [Suspect]
     Active Substance: LIFITEGRAST
     Indication: PROPHYLAXIS
     Dosage: ?          QUANTITY:2 DROP(S);?
     Route: 047
     Dates: start: 20171022, end: 20171024
  3. LORATADINE. [Concomitant]
     Active Substance: LORATADINE
  4. XIIDRA [Suspect]
     Active Substance: LIFITEGRAST
     Indication: POSTOPERATIVE CARE
     Dosage: ?          QUANTITY:2 DROP(S);?
     Route: 047
     Dates: start: 20171022, end: 20171024
  5. VITAMIN B12 [Concomitant]
     Active Substance: CYANOCOBALAMIN
  6. VITAMIN D [Concomitant]
     Active Substance: CHOLECALCIFEROL
  7. DUREZOL [Concomitant]
     Active Substance: DIFLUPREDNATE
  8. FISH OIL [Concomitant]
     Active Substance: FISH OIL

REACTIONS (10)
  - Eyelid irritation [None]
  - Eyelid oedema [None]
  - Mental impairment [None]
  - Eyelids pruritus [None]
  - Foreign body sensation in eyes [None]
  - Pain [None]
  - Ocular hyperaemia [None]
  - Photophobia [None]
  - Lacrimation increased [None]
  - Loss of personal independence in daily activities [None]

NARRATIVE: CASE EVENT DATE: 20171024
